FAERS Safety Report 6925264-1 (Version None)
Quarter: 2010Q3

REPORT INFORMATION
  Report Type: 
  Country: None (occurrence: None)
  Receive Date: 20100816
  Receipt Date: 20100811
  Transmission Date: 20110219
  Serious: Yes (Hospitalization)
  Sender: FDA-Public Use
  Company Number: FR-BRISTOL-MYERS SQUIBB COMPANY-15236847

PATIENT
  Age: 75 Year
  Sex: Female

DRUGS (6)
  1. IRBESARTAN AND HYDROCHLOROTHIAZIDE [Suspect]
     Dosage: 1DF=1 INTAKE;THERAPY DATES: 20-25JUN2010.
     Route: 048
     Dates: start: 20100620
  2. LEVOTHYROXINE SODIUM [Concomitant]
  3. STAGID [Concomitant]
  4. AMAREL [Concomitant]
  5. SECTRAL [Concomitant]
  6. EUPRESSYL [Concomitant]

REACTIONS (3)
  - ASTHENIA [None]
  - FALL [None]
  - HYPONATRAEMIA [None]
